FAERS Safety Report 10451287 (Version 1)
Quarter: 2014Q3

REPORT INFORMATION
  Report Type: Spontaneous
  Country: JP (occurrence: JP)
  Receive Date: 20140912
  Receipt Date: 20140912
  Transmission Date: 20150326
  Serious: Yes (Hospitalization, Other)
  Sender: FDA-Public Use
  Company Number: PHHY2014JP115519

PATIENT
  Sex: Male

DRUGS (2)
  1. NORVASC [Concomitant]
     Active Substance: AMLODIPINE BESYLATE
     Dosage: 2 DF (10 MG) DAILY IN THE MORNING
     Route: 048
  2. DIOVAN [Suspect]
     Active Substance: VALSARTAN
     Dosage: 80 MG, BID (IN THE MORNING AND AFTER DINNER)
     Route: 048

REACTIONS (6)
  - Pneumonia [Unknown]
  - Gamma-glutamyltransferase increased [Unknown]
  - Rheumatic disorder [Unknown]
  - Cholecystitis [Unknown]
  - Myalgia [Unknown]
  - Blood creatine phosphokinase increased [Unknown]
